FAERS Safety Report 23027132 (Version 3)
Quarter: 2023Q4

REPORT INFORMATION
  Report Type: Spontaneous
  Country: DE (occurrence: None)
  Receive Date: 20231004
  Receipt Date: 20231031
  Transmission Date: 20240110
  Serious: Yes (Death, Other)
  Sender: FDA-Public Use
  Company Number: 2023A224804

PATIENT
  Age: 78 Year
  Sex: Male

DRUGS (2)
  1. ACALABRUTINIB [Suspect]
     Active Substance: ACALABRUTINIB
  2. CLOPIDOGREL [Concomitant]
     Active Substance: CLOPIDOGREL BISULFATE

REACTIONS (2)
  - Cardiogenic shock [Fatal]
  - Haemothorax [Fatal]
